FAERS Safety Report 7893298-9 (Version None)
Quarter: 2011Q4

REPORT INFORMATION
  Report Type: 
  Country: None (occurrence: None)
  Receive Date: 20111104
  Receipt Date: 20111101
  Transmission Date: 20120403
  Serious: Yes (Disabling)
  Sender: FDA-Public Use
  Company Number: GB-PFIZER INC-2011267780

PATIENT
  Age: 84 Year
  Sex: Female

DRUGS (5)
  1. PREDNISOLONE [Concomitant]
  2. DOXYCYCLINE HYCLATE [Suspect]
     Indication: TOOTH INFECTION
     Dosage: 100 MG, UNK
     Route: 048
     Dates: start: 20110926, end: 20111002
  3. VENTOLIN [Concomitant]
  4. BECLOMETHASONE DIPROPIONATE [Concomitant]
  5. SPIRIVA [Concomitant]

REACTIONS (3)
  - DYSPNOEA [None]
  - VISUAL IMPAIRMENT [None]
  - CONDITION AGGRAVATED [None]
